FAERS Safety Report 9639765 (Version 1)
Quarter: 2013Q4

REPORT INFORMATION
  Report Type: Spontaneous
  Country: US (occurrence: None)
  Receive Date: 20131021
  Receipt Date: 20131021
  Transmission Date: 20140711
  Serious: Yes (Other)
  Sender: FDA-Public Use
  Company Number: None

PATIENT
  Age: 3 Year
  Sex: Female
  Weight: 14.52 kg

DRUGS (1)
  1. ALBUTEROL SULFATE [Suspect]
     Indication: COUGH
     Dosage: 1 DOSE AS NEEDED INHALATION
     Route: 055
     Dates: start: 20130923, end: 20131014

REACTIONS (4)
  - Cough [None]
  - Wheezing [None]
  - Pyrexia [None]
  - Poor quality drug administered [None]
